FAERS Safety Report 7877850-2 (Version None)
Quarter: 2011Q4

REPORT INFORMATION
  Report Type: 
  Country: None (occurrence: None)
  Receive Date: 20111031
  Receipt Date: 20111031
  Transmission Date: 20120403
  Serious: Yes (Other)
  Sender: FDA-Public Use
  Company Number: None

PATIENT
  Age: 28 Year
  Sex: Female
  Weight: 163.29 kg

DRUGS (3)
  1. REGLAN [Suspect]
     Indication: HYPERCHLORHYDRIA
     Dosage: 10 MG
     Route: 048
     Dates: start: 20110509, end: 20110802
  2. REGLAN [Suspect]
     Indication: VOMITING
     Dosage: 10 MG
     Route: 048
     Dates: start: 20110509, end: 20110802
  3. REGLAN [Suspect]
     Indication: NAUSEA
     Dosage: 10 MG
     Route: 048
     Dates: start: 20110509, end: 20110802

REACTIONS (10)
  - DEPRESSED MOOD [None]
  - WEIGHT DECREASED [None]
  - INSOMNIA [None]
  - NO THERAPEUTIC RESPONSE [None]
  - SUICIDAL IDEATION [None]
  - PANIC ATTACK [None]
  - ANXIETY [None]
  - DYSKINESIA [None]
  - STRESS [None]
  - APHAGIA [None]
